FAERS Safety Report 8269124-5 (Version None)
Quarter: 2012Q1

REPORT INFORMATION
  Report Type: 
  Country: None (occurrence: None)
  Receive Date: 20120327
  Receipt Date: 20090619
  Transmission Date: 20120608
  Serious: Yes (Other)
  Sender: FDA-Public Use
  Company Number: PHEH2009US06062

PATIENT
  Age: 80 Year
  Sex: Female
  Weight: 49.9 kg

DRUGS (2)
  1. GLEEVEC [Suspect]
     Indication: CHRONIC MYELOID LEUKAEMIA
     Dosage: 100 MG/DAY
  2. ZOMETA [Suspect]
     Indication: OSTEOPOROSIS
     Dosage: 2 MG, INTRAVENOUS
     Route: 042

REACTIONS (3)
  - BLOOD CREATININE INCREASED [None]
  - RENAL FAILURE CHRONIC [None]
  - CREATININE RENAL CLEARANCE DECREASED [None]
